FAERS Safety Report 24701294 (Version 1)
Quarter: 2024Q4

REPORT INFORMATION
  Report Type: Spontaneous
  Country: GB (occurrence: GB)
  Receive Date: 20241205
  Receipt Date: 20241205
  Transmission Date: 20250115
  Serious: Yes (Other)
  Sender: ALCON
  Company Number: GB-MHRA-34068517

PATIENT

DRUGS (1)
  1. TROPICAMIDE [Suspect]
     Active Substance: TROPICAMIDE
     Indication: Product used for unknown indication
     Dosage: UNK
     Route: 047
     Dates: start: 20240801

REACTIONS (2)
  - Dysarthria [Unknown]
  - Tremor [Unknown]

NARRATIVE: CASE EVENT DATE: 20240801
